FAERS Safety Report 8185082 (Version 2)
Quarter: 2013Q2

REPORT INFORMATION
  Report Type: Spontaneous
  Country: US (occurrence: US)
  Receive Date: 20111018
  Receipt Date: 20130628
  Transmission Date: 20140414
  Serious: No
  Sender: FDA-Public Use
  Company Number: US-ASTRAZENECA-2010SE42388

PATIENT
  Age: 53 Year
  Sex: Female
  Weight: 40.8 kg

DRUGS (4)
  1. SYMBICORT PMDI [Suspect]
     Indication: CHRONIC OBSTRUCTIVE PULMONARY DISEASE
     Dosage: 160/4.5, BID
     Route: 055
     Dates: start: 201006, end: 201008
  2. SYMBICORT PMDI [Suspect]
     Indication: EMPHYSEMA
     Dosage: 160/4.5, BID
     Route: 055
     Dates: start: 201006, end: 201008
  3. LISINOPRIL [Suspect]
     Indication: HYPERTENSION
     Route: 065
  4. VENTOLIN [Concomitant]

REACTIONS (7)
  - Dyspnoea [Unknown]
  - Dyspnoea [Unknown]
  - Anxiety [Unknown]
  - Stress [Unknown]
  - Hypertension [Unknown]
  - Intentional drug misuse [Unknown]
  - Drug dose omission [Unknown]
